FAERS Safety Report 18347181 (Version 2)
Quarter: 2020Q4

REPORT INFORMATION
  Report Type: Spontaneous
  Country: US (occurrence: US)
  Receive Date: 20201005
  Receipt Date: 20201013
  Transmission Date: 20210114
  Serious: No
  Sender: FDA-Public Use
  Company Number: US-009507513-2009USA011786

PATIENT
  Age: 23 Year
  Sex: Female
  Weight: 54.42 kg

DRUGS (2)
  1. NEXPLANON [Suspect]
     Active Substance: ETONOGESTREL
     Dosage: 1 IMPLANT
     Route: 059
     Dates: start: 20200929
  2. NEXPLANON [Suspect]
     Active Substance: ETONOGESTREL
     Dosage: 1 IMPLANT
     Route: 059
     Dates: start: 20190328, end: 20200929

REACTIONS (3)
  - Implant site pain [Unknown]
  - Device breakage [Recovered/Resolved]
  - Medical device site discomfort [Recovered/Resolved]

NARRATIVE: CASE EVENT DATE: 20200928
